FAERS Safety Report 5475371-8 (Version None)
Quarter: 2007Q4

REPORT INFORMATION
  Report Type: 
  Country: None (occurrence: None)
  Receive Date: 20071003
  Receipt Date: 20070928
  Transmission Date: 20080405
  Serious: Yes (Disabling)
  Sender: FDA-Public Use
  Company Number: GB-SP-2007-03074

PATIENT
  Age: 64 Year
  Sex: Female

DRUGS (2)
  1. IMMUCYST [Suspect]
     Indication: BLADDER CANCER
     Route: 043
     Dates: start: 20050915, end: 20070524
  2. IMODIUM [Concomitant]
     Indication: DEFAECATION URGENCY
     Route: 045

REACTIONS (3)
  - BLADDER DISCOMFORT [None]
  - MICTURITION URGENCY [None]
  - POLLAKIURIA [None]
